FAERS Safety Report 5056345-8 (Version None)
Quarter: 2006Q3

REPORT INFORMATION
  Report Type: 
  Country: None (occurrence: None)
  Receive Date: 20060720
  Receipt Date: 20060602
  Transmission Date: 20061208
  Serious: Yes (Disabling)
  Sender: FDA-Public Use
  Company Number: US-ROCHE-451166

PATIENT
  Age: 33 Year
  Sex: Female
  Weight: 48.5 kg

DRUGS (1)
  1. ACCUTANE [Suspect]
     Indication: DRUG USE FOR UNKNOWN INDICATION
     Route: 065
     Dates: start: 20050315, end: 20051001

REACTIONS (5)
  - DEPRESSION [None]
  - FEMALE SEXUAL AROUSAL DISORDER [None]
  - INADEQUATE LUBRICATION [None]
  - ORGASM ABNORMAL [None]
  - SEXUAL DYSFUNCTION [None]
